FAERS Safety Report 5999951-6 (Version None)
Quarter: 2008Q4

REPORT INFORMATION
  Report Type: 
  Country: None (occurrence: None)
  Receive Date: 20081215
  Receipt Date: 20081210
  Transmission Date: 20090506
  Serious: Yes (Death, Other)
  Sender: FDA-Public Use
  Company Number: PHHY2008JP31675

PATIENT
  Sex: Male

DRUGS (2)
  1. SANDOSTATIN [Suspect]
     Indication: GASTROINTESTINAL OBSTRUCTION
     Route: 058
  2. SCOPOLAMINE BUTYLBROMIDE [Suspect]
     Indication: GASTROINTESTINAL OBSTRUCTION
     Route: 058

REACTIONS (3)
  - GASTROINTESTINAL FISTULA [None]
  - MULTI-ORGAN FAILURE [None]
  - THIRST [None]
